FAERS Safety Report 5929119-0 (Version None)
Quarter: 2008Q4

REPORT INFORMATION
  Report Type: 
  Country: None (occurrence: None)
  Receive Date: 20081020
  Receipt Date: 20081001
  Transmission Date: 20090506
  Serious: Yes (Disabling)
  Sender: FDA-Public Use
  Company Number: 8036078

PATIENT
  Age: 13 Year
  Sex: Male

DRUGS (5)
  1. KEPPRA [Suspect]
     Indication: CIRCADIAN RHYTHM SLEEP DISORDER
     Dosage: 1000 MG 2/D
     Dates: start: 20080701, end: 20080812
  2. KEPPRA [Suspect]
     Indication: EPILEPSY
     Dosage: 1000 MG 2/D
     Dates: start: 20080701, end: 20080812
  3. KEPPRA [Suspect]
     Indication: CIRCADIAN RHYTHM SLEEP DISORDER
     Dates: start: 20080101
  4. KEPPRA [Suspect]
     Indication: EPILEPSY
     Dates: start: 20080101
  5. MINIRIN [Concomitant]

REACTIONS (1)
  - BLINDNESS UNILATERAL [None]
